FAERS Safety Report 6124401-9 (Version None)
Quarter: 2009Q1

REPORT INFORMATION
  Report Type: 
  Country: None (occurrence: None)
  Receive Date: 20090317
  Receipt Date: 20090311
  Transmission Date: 20090719
  Serious: Yes (Death, Hospitalization)
  Sender: FDA-Public Use
  Company Number: DAV-AE-MTX-09-021

PATIENT
  Age: 35 Year
  Sex: Female

DRUGS (5)
  1. METHOTREXATE [Suspect]
     Indication: GLIOBLASTOMA MULTIFORME
     Dosage: 12 G/M SQ
     Route: 058
  2. PHENOBARBITAL TAB [Concomitant]
  3. DEXAMETHASONE [Concomitant]
  4. 5% DEXTROSE/SODIUM BICARBONATE IV [Concomitant]
  5. LEUCOVORIN CALCIUM [Concomitant]

REACTIONS (5)
  - BRAIN COMPRESSION [None]
  - BRAIN HERNIATION [None]
  - BRAIN OEDEMA [None]
  - DRUG TOXICITY [None]
  - UNRESPONSIVE TO STIMULI [None]
